FAERS Safety Report 17272743 (Version 1)
Quarter: 2020Q1

REPORT INFORMATION
  Report Type: Spontaneous
  Country: AU (occurrence: AU)
  Receive Date: 20200115
  Receipt Date: 20200115
  Transmission Date: 20200409
  Serious: Yes (Other)
  Sender: FDA-Public Use
  Company Number: AU-009507513-2001AUS004591

PATIENT
  Sex: Female

DRUGS (3)
  1. PUREGON [FOLLITROPIN BETA] [Suspect]
     Active Substance: FOLLITROPIN
     Dosage: UNK
  2. PUREGON [FOLLITROPIN BETA] [Suspect]
     Active Substance: FOLLITROPIN
  3. PREGNYL [Suspect]
     Active Substance: CHORIOGONADOTROPIN ALFA
     Dosage: UNK

REACTIONS (1)
  - Pancreatitis [Unknown]
